FAERS Safety Report 7934061-X (Version None)
Quarter: 2011Q4

REPORT INFORMATION
  Report Type: 
  Country: None (occurrence: None)
  Receive Date: 20111122
  Receipt Date: 20111116
  Transmission Date: 20120403
  Serious: Yes (Death)
  Sender: FDA-Public Use
  Company Number: JP-SANOFI-AVENTIS-2011SA076165

PATIENT
  Age: 59 Year
  Sex: Male
  Weight: 54.5 kg

DRUGS (19)
  1. TENORMIN [Concomitant]
     Route: 048
     Dates: start: 20090827, end: 20090925
  2. ISOSORBIDE DINITRATE [Concomitant]
     Dates: start: 20090926, end: 20091002
  3. PLAVIX [Suspect]
     Dosage: MAINTAINENCE DOSE
     Route: 065
     Dates: start: 20090916
  4. ASPIRIN [Concomitant]
     Route: 048
     Dates: start: 20090916
  5. DEPAS [Concomitant]
     Route: 048
     Dates: start: 20090825, end: 20100625
  6. MAGNESIUM OXIDE [Concomitant]
     Route: 048
     Dates: start: 20090827
  7. GLYCYRON [Concomitant]
     Route: 048
     Dates: start: 20090827
  8. MUCODYNE [Concomitant]
     Route: 048
     Dates: start: 20091006
  9. IMIDAPRIL HYDROCHLORIDE [Concomitant]
     Route: 048
     Dates: start: 20090827, end: 20090925
  10. GLYCERYL TRINITRATE [Concomitant]
     Dates: start: 20090920, end: 20090925
  11. ROHYPNOL [Concomitant]
     Route: 048
     Dates: start: 20090927
  12. LANSOPRAZOLE [Concomitant]
     Route: 048
     Dates: start: 20110916
  13. PRAVASTATIN SODIUM [Concomitant]
     Route: 048
     Dates: start: 20090915
  14. PLAVIX [Suspect]
     Dosage: LOADING DOSE
     Route: 065
     Dates: start: 20090915, end: 20090915
  15. AMLODIPINE [Concomitant]
     Route: 048
     Dates: start: 20090827, end: 20091123
  16. ZOLPIDEM [Concomitant]
     Route: 048
     Dates: start: 20090927
  17. CEFAZOLIN SODIUM [Concomitant]
     Route: 048
     Dates: start: 20090825
  18. ISOSORBIDE MONONITRATE [Concomitant]
     Route: 048
     Dates: start: 20090926
  19. ADALAT [Concomitant]
     Route: 048
     Dates: start: 20091124

REACTIONS (1)
  - HYPOPHARYNGEAL CANCER [None]
